FAERS Safety Report 23169732 (Version 4)
Quarter: 2023Q4

REPORT INFORMATION
  Report Type: Spontaneous
  Country: US (occurrence: US)
  Receive Date: 20231110
  Receipt Date: 20231129
  Transmission Date: 20240110
  Serious: Yes (Hospitalization, Other)
  Sender: FDA-Public Use
  Company Number: US-ABBVIE-5484241

PATIENT
  Age: 66 Year
  Sex: Female

DRUGS (4)
  1. LEXAPRO [Suspect]
     Active Substance: ESCITALOPRAM OXALATE
     Indication: Insomnia
     Dosage: FORM STRENGTH: 20 MILLIGRAM
     Route: 048
  2. LEXAPRO [Suspect]
     Active Substance: ESCITALOPRAM OXALATE
     Indication: Insomnia
     Dosage: FORM STRENGTH: 10 MILLIGRAM
     Route: 048
  3. LEXAPRO [Suspect]
     Active Substance: ESCITALOPRAM OXALATE
     Indication: Insomnia
     Dosage: FORM STRENGTH: 5 MILLIGRAM; START DATE: MIDDLE OF AUG 2023
     Route: 048
     Dates: start: 202308
  4. LEXAPRO [Suspect]
     Active Substance: ESCITALOPRAM OXALATE
     Indication: Insomnia
     Dosage: FORM STRENGTH: 20 MILLIGRAM
     Route: 048

REACTIONS (30)
  - Hospitalisation [Unknown]
  - Nightmare [Unknown]
  - Diarrhoea [Unknown]
  - Hallucinations, mixed [Unknown]
  - Papule [Unknown]
  - Gait disturbance [Unknown]
  - Nausea [Unknown]
  - Anxiety [Unknown]
  - Impaired driving ability [Unknown]
  - Arthralgia [Unknown]
  - Insomnia [Unknown]
  - Fall [Unknown]
  - Multiple fractures [Unknown]
  - Ventricular tachycardia [Unknown]
  - Confusional state [Unknown]
  - Concussion [Unknown]
  - Illness [Recovering/Resolving]
  - Withdrawal syndrome [Unknown]
  - Dysphemia [Unknown]
  - Pharyngeal disorder [Unknown]
  - Visual impairment [Unknown]
  - Balance disorder [Unknown]
  - Anger [Unknown]
  - Contusion [Unknown]
  - Vomiting [Unknown]
  - Sleep deficit [Unknown]
  - Skin discolouration [Unknown]
  - Withdrawal syndrome [Unknown]
  - Skin mass [Unknown]
  - Loss of personal independence in daily activities [Unknown]

NARRATIVE: CASE EVENT DATE: 20231101
